FAERS Safety Report 15430402 (Version 1)
Quarter: 2018Q3

REPORT INFORMATION
  Report Type: Spontaneous
  Country: US (occurrence: US)
  Receive Date: 20180920
  Receipt Date: 20180920
  Transmission Date: 20181010
  Serious: No
  Sender: FDA-Public Use
  Company Number: None

PATIENT
  Age: 27 Year
  Sex: Female

DRUGS (2)
  1. AIMOVIG [Suspect]
     Active Substance: ERENUMAB-AOOE
  2. BOTOX [Suspect]
     Active Substance: ONABOTULINUMTOXINA
     Dates: start: 201803

REACTIONS (3)
  - Constipation [None]
  - Muscle spasms [None]
  - Drug ineffective [None]

NARRATIVE: CASE EVENT DATE: 20180919
